FAERS Safety Report 8986633 (Version 1)
Quarter: 2012Q4

REPORT INFORMATION
  Report Type: 
  Country: CA (occurrence: CA)
  Receive Date: 20121227
  Receipt Date: 20121227
  Transmission Date: 20130627
  Serious: Yes (Other)
  Sender: FDA-Public Use
  Company Number: CA-ELI_LILLY_AND_COMPANY-CA201212005681

PATIENT
  Sex: Male

DRUGS (2)
  1. CIALIS [Suspect]
     Indication: BENIGN PROSTATIC HYPERPLASIA
     Dosage: 5 mg, qd
     Dates: start: 201211
  2. LUCENTIS [Concomitant]
     Indication: MACULAR DEGENERATION
     Dosage: UNK

REACTIONS (3)
  - Eye haemorrhage [Not Recovered/Not Resolved]
  - Macular degeneration [Unknown]
  - Visual acuity reduced [Unknown]
